FAERS Safety Report 9932263 (Version 1)
Quarter: 2014Q1

REPORT INFORMATION
  Report Type: Spontaneous
  Country: US (occurrence: US)
  Receive Date: 20140228
  Receipt Date: 20140228
  Transmission Date: 20141002
  Serious: No
  Sender: FDA-Public Use
  Company Number: US-ABBVIE-13P-163-1070771-00

PATIENT
  Age: 51 Year
  Sex: Male
  Weight: 96.25 kg

DRUGS (4)
  1. ANDROGEL [Suspect]
     Indication: PRODUCT USED FOR UNKNOWN INDICATION
     Dosage: 2 PUMPS
     Dates: start: 201301, end: 201303
  2. ANDROGEL [Suspect]
     Dosage: 3 PUMPS
  3. ADIPEX-P [Concomitant]
     Indication: WEIGHT DECREASED
  4. CALCIUM [Concomitant]
     Indication: PRODUCT USED FOR UNKNOWN INDICATION

REACTIONS (2)
  - Blood testosterone abnormal [Unknown]
  - Application site pruritus [Not Recovered/Not Resolved]
